FAERS Safety Report 8827628 (Version 2)
Quarter: 2012Q4

REPORT INFORMATION
  Report Type: 
  Country: US (occurrence: US)
  Receive Date: 20121008
  Receipt Date: 20121016
  Transmission Date: 20130627
  Serious: Yes (Hospitalization, Other)
  Sender: FDA-Public Use
  Company Number: US-GENZYME-LEUK-1000306

PATIENT
  Age: 76 Year
  Sex: Male
  Weight: 87.9 kg

DRUGS (17)
  1. LEUKINE [Suspect]
     Indication: MALIGNANT MELANOMA
     Dosage: 250 mcg, qd on days 1-14 (cycle 1-4)
     Route: 058
     Dates: start: 20110516
  2. LEUKINE [Suspect]
     Dosage: 250 mcg, qd on days 1-14 (cycle 5+)
     Route: 058
     Dates: end: 20120918
  3. IPILIMUMAB [Suspect]
     Indication: MALIGNANT MELANOMA
     Dosage: 10 mg/kg, over 90 mins on day 1
     Route: 042
     Dates: start: 20110516
  4. IPILIMUMAB [Suspect]
     Dosage: 10 mg/kg, over 90 mins on day 1 q 12 weeks
     Route: 042
  5. IPILIMUMAB [Suspect]
     Dosage: 862 mg, once; cycle 20
     Route: 042
     Dates: start: 20120702, end: 20120702
  6. TRAMADOL [Concomitant]
     Indication: BACK PAIN
     Dosage: 150 mg, qd
     Route: 048
  7. MELOXICAM [Concomitant]
     Indication: PRODUCT USED FOR UNKNOWN INDICATION
     Dosage: 7.5 mg, qd
     Route: 048
  8. ALLOPURINOL [Concomitant]
     Indication: PRODUCT USED FOR UNKNOWN INDICATION
     Dosage: 300 mg, qd
     Route: 048
  9. ALLOPURINOL [Concomitant]
     Dosage: 100 mg, UNK
     Route: 048
  10. DIPHENHYDRAMINE [Concomitant]
     Indication: PRODUCT USED FOR UNKNOWN INDICATION
     Dosage: 1 tab, UNK
     Route: 065
  11. FISH OIL [Concomitant]
     Indication: PRODUCT USED FOR UNKNOWN INDICATION
     Dosage: 2 tab, UNK
     Route: 048
  12. IBUPROFEN [Concomitant]
     Indication: PRODUCT USED FOR UNKNOWN INDICATION
     Dosage: 2 tab, UNK
     Route: 048
  13. INDOMETHACIN [Concomitant]
     Indication: PRODUCT USED FOR UNKNOWN INDICATION
     Dosage: UNK
     Route: 065
  14. LOPERAMIDE [Concomitant]
     Indication: PRODUCT USED FOR UNKNOWN INDICATION
     Dosage: 1 tab, UNK
     Route: 048
  15. NUTRITIONAL SUPPLEMENT WITH GLUCOSAMIDE COMPLEXT [Concomitant]
     Indication: PRODUCT USED FOR UNKNOWN INDICATION
     Dosage: 2 tab, qd
     Route: 048
  16. VITAMIN D [Concomitant]
     Indication: PRODUCT USED FOR UNKNOWN INDICATION
     Dosage: 2 DF, qd
     Route: 048
  17. ACETAMINOPHEN [Concomitant]
     Indication: PRODUCT USED FOR UNKNOWN INDICATION
     Dosage: 160 mg/ml, UNK

REACTIONS (5)
  - Pulmonary fibrosis [Not Recovered/Not Resolved]
  - Hyponatraemia [Not Recovered/Not Resolved]
  - Pulmonary hypertension [Unknown]
  - Activated partial thromboplastin time prolonged [Not Recovered/Not Resolved]
  - Thyroxine free decreased [Unknown]
